FAERS Safety Report 9638781 (Version 1)
Quarter: 2013Q4

REPORT INFORMATION
  Report Type: Spontaneous
  Country: US (occurrence: US)
  Receive Date: 20131022
  Receipt Date: 20131022
  Transmission Date: 20140711
  Serious: No
  Sender: FDA-Public Use
  Company Number: US-BRISTOL-MYERS SQUIBB COMPANY-19188416

PATIENT
  Age: 72 Year
  Sex: Female
  Weight: 131.97 kg

DRUGS (16)
  1. ELIQUIS [Suspect]
     Indication: ATRIAL FIBRILLATION
     Dates: start: 2013
  2. LANTUS [Concomitant]
     Dosage: LANTUS SOLOSTAR,1DF: 52UNITS NOS,INCEASED
  3. ALLOPURINOL [Concomitant]
     Dosage: TABS
  4. CLONIDINE [Concomitant]
  5. LEXAPRO [Concomitant]
  6. EXFORGE [Concomitant]
     Dosage: 1 DF: 5-160MG
  7. LASIX [Concomitant]
     Dosage: TABS
  8. GLIMEPIRIDE [Concomitant]
  9. HYDROCODONE [Concomitant]
     Dosage: 1DF: 5-500MG
  10. METOLAZONE [Concomitant]
  11. METOPROLOL [Concomitant]
     Dosage: METOPROLOL ER
  12. POTASSIUM CHLORIDE [Concomitant]
  13. TEMAZEPAM [Concomitant]
  14. PRILOSEC [Concomitant]
     Dosage: PRILOSEC OTC
  15. TRADJENTA [Concomitant]
  16. APIDRA [Concomitant]
     Dosage: APIDRA INSULIN SS;NORMALLY QD

REACTIONS (1)
  - Blood glucose increased [Unknown]
